FAERS Safety Report 5910580-2 (Version None)
Quarter: 2008Q4

REPORT INFORMATION
  Report Type: 
  Country: None (occurrence: None)
  Receive Date: 20081007
  Receipt Date: 20080326
  Transmission Date: 20090506
  Serious: No
  Sender: FDA-Public Use
  Company Number: US-ASTRAZENECA-2008UW06102

PATIENT
  Age: 76 Year
  Sex: Female
  Weight: 52.2 kg

DRUGS (5)
  1. ARIMIDEX [Suspect]
     Indication: BREAST CANCER
     Route: 048
     Dates: start: 20030101, end: 20080101
  2. FOSAMAX [Concomitant]
  3. LEVOTHYROXINE SODIUM [Concomitant]
  4. MULTI-VITAMINS [Concomitant]
  5. TEMAZEPAM [Concomitant]

REACTIONS (2)
  - HOT FLUSH [None]
  - OROPHARYNGEAL PAIN [None]
